FAERS Safety Report 15402025 (Version 2)
Quarter: 2018Q4

REPORT INFORMATION
  Report Type: Spontaneous
  Country: NL (occurrence: NL)
  Receive Date: 20180919
  Receipt Date: 20181004
  Transmission Date: 20190204
  Serious: Yes (Other)
  Sender: FDA-Public Use
  Company Number: NL-BAYER-2018-169591

PATIENT
  Sex: Male

DRUGS (7)
  1. STIVARGA [Suspect]
     Active Substance: REGORAFENIB
     Indication: GASTROINTESTINAL STROMAL CANCER
     Dosage: 40 MG, QID
     Dates: start: 20170404, end: 201807
  2. FUROSEMIDE. [Concomitant]
     Active Substance: FUROSEMIDE
     Indication: CARDIOMYOPATHY
  3. STIVARGA [Suspect]
     Active Substance: REGORAFENIB
     Indication: GASTROINTESTINAL STROMAL CANCER
     Dosage: 40 MG, TID
     Dates: start: 201807, end: 20180911
  4. METOPROLOL. [Concomitant]
     Active Substance: METOPROLOL
     Indication: CARDIOMYOPATHY
  5. PANTOPRAZOLE [Concomitant]
     Active Substance: PANTOPRAZOLE
     Indication: CARDIOMYOPATHY
  6. STIVARGA [Suspect]
     Active Substance: REGORAFENIB
     Indication: GASTROINTESTINAL STROMAL CANCER
     Dosage: 40 MG, BID
     Dates: start: 20180912, end: 20180914
  7. CANDESARTAN. [Concomitant]
     Active Substance: CANDESARTAN
     Indication: CARDIOMYOPATHY

REACTIONS (3)
  - Dyspnoea at rest [Not Recovered/Not Resolved]
  - Decreased appetite [Not Recovered/Not Resolved]
  - Fatigue [Not Recovered/Not Resolved]

NARRATIVE: CASE EVENT DATE: 2017
